FAERS Safety Report 17147291 (Version 1)
Quarter: 2019Q4

REPORT INFORMATION
  Report Type: Spontaneous
  Country: AT (occurrence: AT)
  Receive Date: 20191212
  Receipt Date: 20191212
  Transmission Date: 20200122
  Serious: Yes (Other)
  Sender: FDA-Public Use
  Company Number: AT-GUERBET-AT 2009 0001

PATIENT
  Sex: Female

DRUGS (1)
  1. LIPIODOL ULTRA-FLUIDE [Suspect]
     Active Substance: ETHIODIZED OIL
     Indication: X-RAY
     Dates: start: 20090116, end: 20090116

REACTIONS (4)
  - Fat embolism [Recovered/Resolved]
  - Neurological symptom [Recovered/Resolved]
  - Venous intravasation [Unknown]
  - Off label use [Recovered/Resolved]

NARRATIVE: CASE EVENT DATE: 20090116
